FAERS Safety Report 10695620 (Version 1)
Quarter: 2014Q4

REPORT INFORMATION
  Report Type: Report from Study
  Country: US (occurrence: None)
  Receive Date: 20141223
  Receipt Date: 20141223
  Transmission Date: 20150529
  Serious: Yes (Death, Hospitalization)
  Sender: FDA-Public Use
  Company Number: CABO-14004899

PATIENT
  Age: 77 Year
  Sex: Male

DRUGS (16)
  1. DETROL (TOLTERODINE L-TARTRATE) [Concomitant]
  2. MORPHINE SULFATE. [Concomitant]
     Active Substance: MORPHINE SULFATE
  3. LEVOTHYROXINE [Concomitant]
     Active Substance: LEVOTHYROXINE
  4. ZOFRAN (ONDANSETRON) [Concomitant]
  5. MULTIVITAMIN (VITAMINS NOS) [Concomitant]
     Active Substance: VITAMINS
  6. COUMADIN [Concomitant]
     Active Substance: WARFARIN SODIUM
  7. LANTUS [Concomitant]
     Active Substance: INSULIN GLARGINE
  8. METOPROLOL [Concomitant]
     Active Substance: METOPROLOL
  9. DILAUDID [Concomitant]
     Active Substance: HYDROMORPHONE HYDROCHLORIDE
  10. EPZICOM (ABACAVIR SULFATE, LAMIVUDINE) [Concomitant]
  11. COMBIVENT (IPRATROPIUM BROMIDE, SALBUTAMOL SULFATE) [Concomitant]
  12. LORAZEPAM. [Concomitant]
     Active Substance: LORAZEPAM
  13. FENTANYL. [Concomitant]
     Active Substance: FENTANYL
  14. BENADRYL [Concomitant]
     Active Substance: DIPHENHYDRAMINE HYDROCHLORIDE
  15. COMETRIQ [Suspect]
     Active Substance: CABOZANTINIB S-MALATE
     Indication: THYROID CANCER
     Route: 048
     Dates: start: 20141018, end: 201410
  16. DEMADEX (TORASEMIDE) [Concomitant]

REACTIONS (5)
  - Blood pressure increased [None]
  - Gastrointestinal haemorrhage [None]
  - Feeding tube complication [None]
  - Malignant neoplasm progression [None]
  - Gastritis [None]

NARRATIVE: CASE EVENT DATE: 20141025
